FAERS Safety Report 6036324-4 (Version None)
Quarter: 2009Q1

REPORT INFORMATION
  Report Type: 
  Country: None (occurrence: None)
  Receive Date: 20090113
  Receipt Date: 20090107
  Transmission Date: 20090719
  Serious: Yes (Other)
  Sender: FDA-Public Use
  Company Number: FR-ABBOTT-09P-056-0496110-00

PATIENT
  Age: 19 Year
  Sex: Male

DRUGS (2)
  1. MICROPAKINE [Suspect]
     Indication: EPILEPSY
     Route: 048
     Dates: start: 20081226, end: 20081228
  2. DEPAKENE [Concomitant]
     Indication: EPILEPSY
     Route: 048
     Dates: end: 20081225

REACTIONS (3)
  - EPILEPSY [None]
  - EXPIRED DRUG ADMINISTERED [None]
  - TREATMENT NONCOMPLIANCE [None]
